FAERS Safety Report 18164747 (Version 1)
Quarter: 2020Q3

REPORT INFORMATION
  Report Type: Report from Study
  Country: None (occurrence: US)
  Receive Date: 20200819
  Receipt Date: 20200819
  Transmission Date: 20201103
  Serious: Yes (Hospitalization)
  Sender: FDA-Public Use
  Company Number: US-ABBVIE-20K-163-3528522-00

PATIENT
  Sex: Male

DRUGS (2)
  1. HUMIRA [Suspect]
     Active Substance: ADALIMUMAB
     Route: 058
     Dates: start: 20200811
  2. HUMIRA [Suspect]
     Active Substance: ADALIMUMAB
     Indication: PSORIATIC ARTHROPATHY
     Route: 058
     Dates: start: 2018

REACTIONS (20)
  - Hyperhidrosis [Unknown]
  - Psoriasis [Unknown]
  - Arthralgia [Unknown]
  - Back pain [Not Recovered/Not Resolved]
  - Pneumonia [Unknown]
  - Traumatic lung injury [Unknown]
  - Gait inability [Unknown]
  - Pain in extremity [Not Recovered/Not Resolved]
  - Therapeutic product effect incomplete [Unknown]
  - Mobility decreased [Unknown]
  - Skin exfoliation [Unknown]
  - Loss of personal independence in daily activities [Unknown]
  - Stab wound [Unknown]
  - Depression [Unknown]
  - Post-traumatic stress disorder [Unknown]
  - Arthralgia [Not Recovered/Not Resolved]
  - Pain [Unknown]
  - Apparent death [Unknown]
  - Emotional distress [Unknown]
  - Discomfort [Unknown]
